FAERS Safety Report 8883367 (Version 1)
Quarter: 2012Q4

REPORT INFORMATION
  Report Type: 
  Country: US (occurrence: US)
  Receive Date: 20121102
  Receipt Date: 20121102
  Transmission Date: 20130627
  Serious: Yes (Other)
  Sender: FDA-Public Use
  Company Number: US-ACTELION-A-NJ2012-70533

PATIENT
  Age: 59 Year
  Sex: Male

DRUGS (3)
  1. TRACLEER [Suspect]
     Indication: PULMONARY ARTERIAL HYPERTENSION
     Dosage: UNK
     Route: 048
  2. SILDENAFIL [Concomitant]
  3. COUMADIN [Concomitant]

REACTIONS (5)
  - Haemorrhage [Unknown]
  - Anaemia [Unknown]
  - Oedema [Unknown]
  - Dyspnoea [Unknown]
  - Oedema peripheral [Unknown]
